FAERS Safety Report 15264376 (Version 1)
Quarter: 2018Q3

REPORT INFORMATION
  Report Type: Spontaneous
  Country: US (occurrence: US)
  Receive Date: 20180722
  Receipt Date: 20180722
  Transmission Date: 20181010
  Serious: Yes (Disabling)
  Sender: FDA-Public Use
  Company Number: None

PATIENT
  Age: 8 Year
  Sex: Female
  Weight: 40.5 kg

DRUGS (1)
  1. POLYETHYLENE GLYCOL [Suspect]
     Active Substance: POLYETHYLENE GLYCOLS
     Indication: CONSTIPATION
     Route: 048

REACTIONS (4)
  - Anxiety disorder [None]
  - Panic attack [None]
  - Agitation [None]
  - Irritable bowel syndrome [None]

NARRATIVE: CASE EVENT DATE: 20140201
